FAERS Safety Report 7292058-X (Version None)
Quarter: 2011Q1

REPORT INFORMATION
  Report Type: 
  Country: None (occurrence: None)
  Receive Date: 20110215
  Receipt Date: 20110207
  Transmission Date: 20110831
  Serious: Yes (Hospitalization)
  Sender: FDA-Public Use
  Company Number: US-BIOGENIDEC-2011BI004649

PATIENT
  Sex: Female

DRUGS (2)
  1. AVONEX [Suspect]
     Indication: MULTIPLE SCLEROSIS
     Route: 030
     Dates: start: 20101214
  2. AVONEX [Suspect]
     Route: 030
     Dates: start: 19990501, end: 20020501

REACTIONS (2)
  - OSTEONECROSIS [None]
  - OSTEOARTHRITIS [None]
